FAERS Safety Report 9195510 (Version 1)
Quarter: 2013Q1

REPORT INFORMATION
  Report Type: Spontaneous
  Country: US (occurrence: US)
  Receive Date: 20130328
  Receipt Date: 20130328
  Transmission Date: 20140127
  Serious: No
  Sender: FDA-Public Use
  Company Number: US-BIOGENIDEC-2013BI025786

PATIENT
  Age: 42 Year
  Sex: Male

DRUGS (4)
  1. AVONEX [Suspect]
     Indication: MULTIPLE SCLEROSIS
     Route: 030
     Dates: start: 20050708, end: 2012
  2. AVONEX [Suspect]
     Indication: MULTIPLE SCLEROSIS
     Route: 030
     Dates: start: 2012
  3. ACIDOPHILUS [Concomitant]
     Indication: PROPHYLAXIS
  4. OMEPRAZOLE [Concomitant]
     Indication: PROPHYLAXIS

REACTIONS (2)
  - Tooth erosion [Not Recovered/Not Resolved]
  - Sensitivity of teeth [Not Recovered/Not Resolved]
